FAERS Safety Report 6329063-3 (Version None)
Quarter: 2009Q3

REPORT INFORMATION
  Report Type: 
  Country: None (occurrence: None)
  Receive Date: 20090826
  Receipt Date: 20090825
  Transmission Date: 20100115
  Serious: Yes (Hospitalization)
  Sender: FDA-Public Use
  Company Number: GXKR2009DK08478

PATIENT
  Sex: Female

DRUGS (4)
  1. ALENDRONIC ACID (NGX) [Suspect]
     Indication: OSTEOPOROSIS PROPHYLAXIS
     Dosage: 70 MG, ONCE/SINGLE
     Route: 048
     Dates: start: 20090616, end: 20090617
  2. ACLASTA [Suspect]
     Indication: OSTEOPOROSIS
     Dosage: 5 MG, ONCE/SINGLE
     Route: 042
     Dates: start: 20090625
  3. PREDNISOLONE [Concomitant]
     Dosage: 5 MG, QD
     Route: 048
     Dates: start: 20070101
  4. METHOTREXATE [Concomitant]
     Dosage: 2.5 MG, QW
     Route: 048
     Dates: start: 20070101, end: 20090701

REACTIONS (4)
  - CHILLS [None]
  - FLANK PAIN [None]
  - PYELONEPHRITIS [None]
  - PYREXIA [None]
